FAERS Safety Report 4816907-7 (Version None)
Quarter: 2005Q4

REPORT INFORMATION
  Report Type: 
  Country: None (occurrence: None)
  Receive Date: 20051101
  Receipt Date: 20051024
  Transmission Date: 20060501
  Serious: Yes (Other)
  Sender: FDA-Public Use
  Company Number: IN-ABBOTT-05P-078-0315042-00

PATIENT
  Age: 15 Year
  Sex: Female

DRUGS (1)
  1. VALPROIC ACID [Suspect]
     Indication: EPILEPSY

REACTIONS (3)
  - FACTOR XIII DEFICIENCY [None]
  - HAEMORRHAGE [None]
  - OPEN FRACTURE [None]
